FAERS Safety Report 5441225-6 (Version None)
Quarter: 2007Q3

REPORT INFORMATION
  Report Type: 
  Country: None (occurrence: None)
  Receive Date: 20070901
  Receipt Date: 20070822
  Transmission Date: 20080115
  Serious: Yes (Hospitalization)
  Sender: FDA-Public Use
  Company Number: HK-PFIZER INC-2007070382

PATIENT
  Sex: Male
  Weight: 52.6 kg

DRUGS (1)
  1. SU-011,248 [Suspect]
     Indication: NASOPHARYNGEAL CANCER

REACTIONS (1)
  - INFECTION [None]
